FAERS Safety Report 19131885 (Version 6)
Quarter: 2022Q2

REPORT INFORMATION
  Report Type: Report from Study
  Country: US (occurrence: US)
  Receive Date: 20210414
  Receipt Date: 20220603
  Transmission Date: 20220721
  Serious: Yes (Hospitalization)
  Sender: FDA-Public Use
  Company Number: US-BOEHRINGERINGELHEIM-2020-BI-005931

PATIENT
  Age: 90 Year
  Sex: Male

DRUGS (3)
  1. OFEV [Suspect]
     Active Substance: NINTEDANIB
     Indication: Idiopathic pulmonary fibrosis
     Route: 048
     Dates: start: 20200114
  2. OFEV [Suspect]
     Active Substance: NINTEDANIB
  3. GLIMEPIRIDE [Suspect]
     Active Substance: GLIMEPIRIDE
     Indication: Product used for unknown indication

REACTIONS (12)
  - Gastrointestinal disorder [Recovered/Resolved]
  - Haematochezia [Unknown]
  - Fall [Unknown]
  - Diarrhoea [Recovered/Resolved]
  - Contusion [Unknown]
  - Contusion [Unknown]
  - Blood pressure decreased [Unknown]
  - Constipation [Recovering/Resolving]
  - Skin laceration [Unknown]
  - Weight decreased [Recovering/Resolving]
  - Glycosylated haemoglobin increased [Unknown]
  - Vomiting [Unknown]

NARRATIVE: CASE EVENT DATE: 20211101
